FAERS Safety Report 12203114 (Version 1)
Quarter: 2016Q1

REPORT INFORMATION
  Report Type: Report from Study
  Country: US (occurrence: None)
  Receive Date: 20160318
  Receipt Date: 20160318
  Transmission Date: 20160526
  Serious: Yes (Other)
  Sender: FDA-Public Use
  Company Number: 16US008753

PATIENT
  Age: 25 Year
  Sex: Female

DRUGS (1)
  1. RIBAVIRIN (RIBAVIRIN) TABLET [Suspect]
     Active Substance: RIBAVIRIN
     Indication: HEPATITIS C
     Route: 048
     Dates: start: 20150519, end: 20150801

REACTIONS (4)
  - Maternal exposure before pregnancy [None]
  - Urinary tract infection [None]
  - Congenital uterine anomaly [None]
  - Ultrasound antenatal screen abnormal [None]

NARRATIVE: CASE EVENT DATE: 20160123
